FAERS Safety Report 9354824 (Version 1)
Quarter: 2013Q2

REPORT INFORMATION
  Report Type: Spontaneous
  Country: US (occurrence: None)
  Receive Date: 20130618
  Receipt Date: 20130618
  Transmission Date: 20140414
  Serious: Yes (Death)
  Sender: FDA-Public Use
  Company Number: None

PATIENT
  Age: 64 Year
  Sex: Male

DRUGS (2)
  1. POTASSIUM CHLORIDE [Suspect]
  2. SPIRONOLACTONE [Suspect]

REACTIONS (4)
  - Hyperkalaemia [None]
  - Cardioactive drug level increased [None]
  - Renal failure acute [None]
  - Cardio-respiratory arrest [None]
